FAERS Safety Report 9226843 (Version 1)
Quarter: 2013Q2

REPORT INFORMATION
  Report Type: Spontaneous
  Country: TN (occurrence: TN)
  Receive Date: 20130412
  Receipt Date: 20130412
  Transmission Date: 20140414
  Serious: Yes (Other)
  Sender: FDA-Public Use
  Company Number: TN-JNJFOC-20130402915

PATIENT
  Sex: Male

DRUGS (1)
  1. REMICADE [Suspect]
     Indication: BEHCET^S SYNDROME
     Route: 042

REACTIONS (3)
  - Myocardial infarction [Unknown]
  - Off label use [Unknown]
  - Therapeutic response unexpected [Unknown]
